FAERS Safety Report 13557636 (Version 5)
Quarter: 2018Q3

REPORT INFORMATION
  Report Type: Report from Study
  Country: DE (occurrence: DE)
  Receive Date: 20170518
  Receipt Date: 20180705
  Transmission Date: 20181010
  Serious: Yes (Death, Hospitalization, Other)
  Sender: FDA-Public Use
  Company Number: DE-JNJFOC-20160908505

PATIENT
  Age: 59 Year
  Sex: Female

DRUGS (5)
  1. IBUPROFEN. [Concomitant]
     Active Substance: IBUPROFEN
     Route: 065
     Dates: start: 2002
  2. SIMPONI [Suspect]
     Active Substance: GOLIMUMAB
     Indication: PSORIATIC ARTHROPATHY
     Route: 058
     Dates: start: 20150326, end: 2016
  3. SIMPONI [Suspect]
     Active Substance: GOLIMUMAB
     Indication: PSORIATIC ARTHROPATHY
     Route: 058
     Dates: start: 20160810
  4. METEX [Concomitant]
     Indication: PSORIATIC ARTHROPATHY
     Route: 065
     Dates: start: 201506
  5. TRAMADOL. [Concomitant]
     Active Substance: TRAMADOL
     Dosage: 20 DROPS MAXIMUM DAILY DOSE
     Route: 065
     Dates: start: 20150305

REACTIONS (3)
  - Hospitalisation [Unknown]
  - Radius fracture [Recovered/Resolved]
  - Lung carcinoma cell type unspecified stage III [Fatal]

NARRATIVE: CASE EVENT DATE: 20160816
